FAERS Safety Report 21810407 (Version 2)
Quarter: 2023Q1

REPORT INFORMATION
  Report Type: Report from Study
  Country: EG (occurrence: EG)
  Receive Date: 20230103
  Receipt Date: 20230109
  Transmission Date: 20230417
  Serious: Yes (Other)
  Sender: FDA-Public Use
  Company Number: EG-002147023-NVSC2023EG000798

PATIENT
  Age: 14 Year
  Sex: Male

DRUGS (2)
  1. COSENTYX [Suspect]
     Active Substance: SECUKINUMAB
     Indication: Psoriasis
     Dosage: 1 DOSAGE FORM, Q2W (FOR ONE MONTH AS A LOADING DOSE THEN 2 PREFILLED PENS EVERY MONTH)
     Route: 058
     Dates: start: 20221120
  2. COSENTYX [Suspect]
     Active Substance: SECUKINUMAB
     Indication: Eczema

REACTIONS (3)
  - Mycobacterium tuberculosis complex test positive [Unknown]
  - Off label use [Not Recovered/Not Resolved]
  - Drug effect less than expected [Not Recovered/Not Resolved]

NARRATIVE: CASE EVENT DATE: 20221120
